FAERS Safety Report 21835904 (Version 5)
Quarter: 2024Q2

REPORT INFORMATION
  Report Type: Report from Study
  Country: GB (occurrence: GB)
  Receive Date: 20230109
  Receipt Date: 20240517
  Transmission Date: 20240715
  Serious: Yes (Death, Hospitalization)
  Sender: FDA-Public Use
  Company Number: GB-CELLTRION INC.-2022GB021553

PATIENT

DRUGS (31)
  1. BEVACIZUMAB [Suspect]
     Active Substance: BEVACIZUMAB
     Indication: Non-small cell lung cancer metastatic
     Dosage: 900 MILLIGRAM
     Dates: start: 20211213
  2. ATEZOLIZUMAB [Suspect]
     Active Substance: ATEZOLIZUMAB
     Indication: Non-small cell lung cancer metastatic
     Dosage: 1200 MILLIGRAM
     Route: 042
     Dates: start: 20211213
  3. CARBOPLATIN [Suspect]
     Active Substance: CARBOPLATIN
     Indication: Non-small cell lung cancer metastatic
     Dosage: 400 MILLIGRAM
     Route: 065
     Dates: start: 20211214
  4. PACLITAXEL [Suspect]
     Active Substance: PACLITAXEL
     Indication: Non-small cell lung cancer metastatic
     Dosage: 240 MILLIGRAM
     Route: 065
     Dates: start: 20211214
  5. AFATINIB [Concomitant]
     Active Substance: AFATINIB
     Indication: Neoplasm malignant
     Dosage: 40 MG
     Route: 065
  6. AFATINIB [Concomitant]
     Active Substance: AFATINIB
     Dosage: 30 MG
  7. AMLODIPINE [Concomitant]
     Active Substance: AMLODIPINE BESYLATE
     Dosage: 10 MILLIGRAM, QD
  8. ATEZOLIZUMAB [Concomitant]
     Active Substance: ATEZOLIZUMAB
  9. CHLORPHENIRAMINE MALEATE [Concomitant]
     Active Substance: CHLORPHENIRAMINE MALEATE
     Dosage: 10 MG
     Route: 065
     Dates: start: 20220215, end: 20220215
  10. CHLORPHENIRAMINE MALEATE [Concomitant]
     Active Substance: CHLORPHENIRAMINE MALEATE
     Dosage: 10 MG
     Route: 065
     Dates: start: 20220307, end: 20220307
  11. CHLORPHENIRAMINE MALEATE [Concomitant]
     Active Substance: CHLORPHENIRAMINE MALEATE
     Dosage: 10 MG
     Route: 065
     Dates: start: 20220329, end: 20220329
  12. COCODAMOL [Concomitant]
     Active Substance: ACETAMINOPHEN\CODEINE PHOSPHATE
     Dosage: 1 DOSAGE FORM, PRN
     Dates: start: 202111
  13. CHLOROFORM\CODEINE PHOSPHATE\DRIMIA MARITIMA BULB [Concomitant]
     Active Substance: CHLOROFORM\CODEINE PHOSPHATE\DRIMIA MARITIMA BULB
     Indication: Adverse event
     Dosage: 15-30MG EVERY 0.25 DAY
     Route: 065
     Dates: start: 20211231
  14. DEXAMETHASONE [Concomitant]
     Active Substance: DEXAMETHASONE
     Dosage: 20 MILLIGRAM
     Dates: start: 20220215, end: 20220215
  15. DEXAMETHASONE [Concomitant]
     Active Substance: DEXAMETHASONE
     Dosage: 20 MILLIGRAM
     Route: 065
     Dates: start: 20220307, end: 20220307
  16. DEXAMETHASONE [Concomitant]
     Active Substance: DEXAMETHASONE
     Dosage: UNK
     Route: 065
     Dates: start: 20220329, end: 20220329
  17. DOXAZOSIN [Concomitant]
     Active Substance: DOXAZOSIN MESYLATE
     Dosage: 2 MG, QD
     Route: 065
     Dates: start: 1995
  18. DOXYCYCLINE [Concomitant]
     Active Substance: DOXYCYCLINE
     Dosage: DOXYCYCLINE 100; EVERY 1 DAY
     Route: 065
     Dates: start: 2019
  19. FERROUS FUMARATE [Concomitant]
     Active Substance: FERROUS FUMARATE
     Dosage: 210 MG, EVERY 0.5 DAY
     Route: 065
     Dates: start: 20211201
  20. MORPHINE SULFATE [Concomitant]
     Active Substance: MORPHINE SULFATE
     Dosage: MEDICAL FREQUENCY-OTHER
     Dates: start: 20220105
  21. MOVICOL [Concomitant]
     Active Substance: POLYETHYLENE GLYCOL 3350\POTASSIUM CHLORIDE\SODIUM BICARBONATE\SODIUM CHLORIDE
     Dosage: UNK
     Dates: start: 202111
  22. MOVICOL [Concomitant]
     Active Substance: POLYETHYLENE GLYCOL 3350\POTASSIUM CHLORIDE\SODIUM BICARBONATE\SODIUM CHLORIDE
     Dosage: 15-30MG
     Route: 065
     Dates: start: 20211101
  23. MOVICOL [Concomitant]
     Active Substance: POLYETHYLENE GLYCOL 3350\POTASSIUM CHLORIDE\SODIUM BICARBONATE\SODIUM CHLORIDE
     Dosage: UNK
     Dates: start: 20211201
  24. OMEPRAZOLE [Concomitant]
     Active Substance: DONEPEZIL HYDROCHLORIDE\OMEPRAZOLE\OMEPRAZOLE MAGNESIUM
     Dosage: 20 MG, QD
     Route: 065
     Dates: start: 20211201
  25. ONDANSETRON [Concomitant]
     Active Substance: ONDANSETRON
     Dosage: 8 MG
     Route: 065
     Dates: start: 20220215, end: 20220215
  26. ONDANSETRON [Concomitant]
     Active Substance: ONDANSETRON
     Dosage: 8 MG
     Route: 065
     Dates: start: 20220307, end: 20220307
  27. ONDANSETRON [Concomitant]
     Active Substance: ONDANSETRON
     Dosage: 8 MG
     Route: 065
     Dates: start: 20220329, end: 20220329
  28. OSIMERTINIB [Concomitant]
     Active Substance: OSIMERTINIB
     Indication: Neoplasm malignant
     Dosage: 80 MG
     Route: 065
  29. PREDNISOLONE [Concomitant]
     Active Substance: PREDNISOLONE
     Indication: Prophylaxis
     Dosage: UNKNOWN;
     Dates: start: 20220601, end: 20220607
  30. PREDNISOLONE [Concomitant]
     Active Substance: PREDNISOLONE
     Dosage: UNKNOWN;
     Dates: start: 20220608, end: 20220621
  31. PREDNISOLONE [Concomitant]
     Active Substance: PREDNISOLONE
     Dosage: UNKNOWN;
     Dates: start: 20220622, end: 20220628

REACTIONS (5)
  - Death [Fatal]
  - Nausea [Recovered/Resolved]
  - Vomiting [Recovered/Resolved]
  - Nausea [Recovered/Resolved]
  - Intentional product use issue [Unknown]

NARRATIVE: CASE EVENT DATE: 20220202
